FAERS Safety Report 25369546 (Version 1)
Quarter: 2025Q2

REPORT INFORMATION
  Report Type: Spontaneous
  Country: IT (occurrence: IT)
  Receive Date: 20250528
  Receipt Date: 20250528
  Transmission Date: 20250717
  Serious: Yes (Other)
  Sender: ALNYLAM PHARMACEUTICALS
  Company Number: IT-ALNYLAM PHARMACEUTICALS, INC.-ALN-2025-003496

PATIENT

DRUGS (1)
  1. GIVLAARI [Suspect]
     Active Substance: GIVOSIRAN SODIUM
     Indication: Product used for unknown indication
     Dosage: 1.25 MILLIGRAM/KILOGRAM, MONTHLY
     Route: 065

REACTIONS (4)
  - Tubulointerstitial nephritis [Unknown]
  - Intentional product use issue [Unknown]
  - Liver transplant [Unknown]
  - Renal transplant [Unknown]
